FAERS Safety Report 9784723 (Version 2)
Quarter: 2014Q2

REPORT INFORMATION
  Report Type: Report from Study
  Country: US (occurrence: US)
  Receive Date: 20131227
  Receipt Date: 20140618
  Transmission Date: 20141212
  Serious: Yes (Hospitalization)
  Sender: FDA-Public Use
  Company Number: US-B.I. PHARMACEUTICALS,INC./RIDGEFIELD-2013-BI-43257BI

PATIENT
  Sex: Female
  Weight: 127 kg

DRUGS (11)
  1. GILOTRIF [Suspect]
     Indication: NON-SMALL CELL LUNG CANCER METASTATIC
     Dosage: 40 MG
     Route: 048
     Dates: start: 20131101
  2. GILOTRIF [Suspect]
     Dosage: 20 MG
     Route: 048
     Dates: start: 20131101
  3. GILOTRIF [Suspect]
     Dosage: 30 MG
     Route: 048
     Dates: start: 201311
  4. GILOTRIF [Suspect]
     Dosage: 30 MG
     Route: 048
     Dates: start: 201402, end: 201404
  5. GILOTRIF [Suspect]
     Dosage: 20 MG
     Route: 048
     Dates: start: 201405
  6. XARELTO [Concomitant]
     Indication: DEEP VEIN THROMBOSIS
     Route: 065
  7. ALDACTONE [Concomitant]
     Indication: CARDIAC FAILURE CONGESTIVE
     Route: 065
  8. LISINOPRIL [Concomitant]
     Indication: HYPERTENSION
     Route: 065
  9. ISOSORBIDE [Concomitant]
     Indication: HYPERTENSION
     Route: 065
  10. COREG [Concomitant]
     Indication: HYPERTENSION
     Route: 065
  11. COREG [Concomitant]
     Indication: CARDIAC FAILURE CONGESTIVE

REACTIONS (6)
  - Cardiac disorder [Unknown]
  - Pneumonia [Unknown]
  - Diarrhoea [Recovered/Resolved]
  - Skin exfoliation [Unknown]
  - Skin reaction [Unknown]
  - Rash [Recovered/Resolved]
